FAERS Safety Report 8423243-9 (Version None)
Quarter: 2012Q2

REPORT INFORMATION
  Report Type: 
  Country: None (occurrence: None)
  Receive Date: 20120608
  Receipt Date: 20120606
  Transmission Date: 20120825
  Serious: Yes (Hospitalization)
  Sender: FDA-Public Use
  Company Number: US-ELI_LILLY_AND_COMPANY-US201206002525

PATIENT
  Sex: Female

DRUGS (4)
  1. HUMATROPE [Suspect]
     Indication: HYPOTHALAMO-PITUITARY DISORDER
     Dosage: 0.6 MG, QD
  2. ACETAZOLAMIDE [Concomitant]
     Dosage: 500 MG, OTHER
  3. CORTEF [Concomitant]
     Dosage: UNK, UNKNOWN
  4. CORTISONE ACETATE [Concomitant]
     Dosage: UNK, UNKNOWN

REACTIONS (8)
  - HEADACHE [None]
  - WEIGHT DECREASED [None]
  - DECREASED APPETITE [None]
  - MOBILITY DECREASED [None]
  - OTORRHOEA [None]
  - INTRACRANIAL HYPOTENSION [None]
  - HEAD INJURY [None]
  - EAR TUBE INSERTION [None]
